FAERS Safety Report 9711467 (Version 2)
Quarter: 2013Q4

REPORT INFORMATION
  Report Type: Spontaneous
  Country: US (occurrence: US)
  Receive Date: 20131126
  Receipt Date: 20131126
  Transmission Date: 20140711
  Serious: No
  Sender: FDA-Public Use
  Company Number: US-BRISTOL-MYERS SQUIBB COMPANY-18754150

PATIENT
  Age: 58 Year
  Sex: Male
  Weight: 158.73 kg

DRUGS (6)
  1. BYDUREON [Suspect]
     Indication: TYPE 2 DIABETES MELLITUS
     Dosage: INJECTION
     Route: 058
  2. METFORMIN [Concomitant]
     Dosage: 1DF:4 PILLS
  3. BABY ASPIRIN [Concomitant]
  4. LANTUS [Concomitant]
     Dosage: 1DF:65 UNITS AT NIGHT AND 45 UNITS IN THE MORNING
  5. HUMALOG [Concomitant]
     Dosage: 1DF:34 UNITS
  6. SYMLIN [Concomitant]
     Dosage: SYMLINPEN

REACTIONS (4)
  - Injection site haemorrhage [Not Recovered/Not Resolved]
  - Injection site extravasation [Not Recovered/Not Resolved]
  - Injection site pain [Unknown]
  - Underdose [Unknown]
